FAERS Safety Report 4587918-4 (Version None)
Quarter: 2005Q1

REPORT INFORMATION
  Report Type: 
  Country: None (occurrence: None)
  Receive Date: 20050219
  Receipt Date: 20050209
  Transmission Date: 20050727
  Serious: Yes (Other)
  Sender: FDA-Public Use
  Company Number: PHNU2005DE00918

PATIENT
  Age: 77 Year
  Sex: Female

DRUGS (2)
  1. TRASITENSIN RETARD [Suspect]
     Indication: HYPERTENSION
     Dosage: 1 DF, QD
     Route: 048
     Dates: start: 19930101
  2. DIOVAN [Suspect]
     Dates: start: 19990101

REACTIONS (2)
  - BACK PAIN [None]
  - OSTEOPOROSIS [None]
